FAERS Safety Report 8608489-9 (Version None)
Quarter: 2012Q3

REPORT INFORMATION
  Report Type: 
  Country: None (occurrence: None)
  Receive Date: 20120821
  Receipt Date: 20120814
  Transmission Date: 20120928
  Serious: Yes (Death, Other)
  Sender: FDA-Public Use
  Company Number: NO-ROCHE-GNE294940

PATIENT
  Sex: Female

DRUGS (4)
  1. MORPHINE [Concomitant]
     Indication: PRODUCT USED FOR UNKNOWN INDICATION
     Dosage: UNK
  2. AFIPRAN [Concomitant]
     Indication: PRODUCT USED FOR UNKNOWN INDICATION
     Dosage: UNK
  3. ASPIRIN [Concomitant]
     Indication: PRODUCT USED FOR UNKNOWN INDICATION
     Dosage: UNK
  4. METALYSE [Suspect]
     Indication: ACUTE MYOCARDIAL INFARCTION
     Dosage: UNK
     Dates: start: 20091101

REACTIONS (2)
  - CEREBRAL HAEMORRHAGE [None]
  - RESPIRATORY ARREST [None]
